FAERS Safety Report 8834326 (Version 2)
Quarter: 2013Q1

REPORT INFORMATION
  Report Type: Spontaneous
  Country: US (occurrence: None)
  Receive Date: 20121009
  Receipt Date: 20121119
  Transmission Date: 20140127
  Serious: Yes (Hospitalization)
  Sender: FDA-Public Use
  Company Number: ACO_32273_2012

PATIENT
  Age: 72 Year
  Sex: Female

DRUGS (6)
  1. AMPYRA [Suspect]
     Indication: MULTIPLE SCLEROSIS
     Route: 048
     Dates: start: 201104, end: 2012
  2. GILENYA [Suspect]
     Indication: MULTIPLE SCLEROSIS
     Route: 048
     Dates: start: 2012, end: 201209
  3. COUMADIN (WARFARIN SODIUM) [Suspect]
     Indication: ATRIAL FIBRILLATION
     Route: 048
     Dates: end: 2012
  4. CELEBREX (CELECOXIB) [Concomitant]
  5. TRAMADOL (TRAMADOL HYDROCHLORIDE) [Concomitant]
  6. NSAID^S [Concomitant]

REACTIONS (5)
  - Pain in jaw [None]
  - Pain in extremity [None]
  - Back pain [None]
  - Inappropriate schedule of drug administration [None]
  - Thrombosis [None]
